FAERS Safety Report 19076778 (Version 2)
Quarter: 2021Q2

REPORT INFORMATION
  Report Type: Spontaneous
  Country: PT (occurrence: PT)
  Receive Date: 20210331
  Receipt Date: 20210409
  Transmission Date: 20210717
  Serious: Yes (Hospitalization, Other)
  Sender: FDA-Public Use
  Company Number: PT-SA-2021SA102133

PATIENT
  Age: 70 Year
  Sex: Male

DRUGS (10)
  1. ALPRAZOLAM. [Concomitant]
     Active Substance: ALPRAZOLAM
  2. NAPROXEN. [Suspect]
     Active Substance: NAPROXEN
     Indication: ARTHRALGIA
  3. TAMSULOSIN [Concomitant]
     Active Substance: TAMSULOSIN
  4. ACETYLSALICYLIC ACID [Suspect]
     Active Substance: ASPIRIN
     Indication: MYOCARDIAL ISCHAEMIA
  5. TRAZODONE [Concomitant]
     Active Substance: TRAZODONE HYDROCHLORIDE
  6. SIMVASTATIN. [Concomitant]
     Active Substance: SIMVASTATIN
  7. GLUCOSAMINE [Suspect]
     Active Substance: GLUCOSAMINE
     Indication: ARTHRALGIA
  8. DUTASTERIDE. [Concomitant]
     Active Substance: DUTASTERIDE
  9. PIKETOPROFEN. [Suspect]
     Active Substance: PIKETOPROFEN
  10. VERAPAMIL [Concomitant]
     Active Substance: VERAPAMIL HYDROCHLORIDE

REACTIONS (8)
  - Gastric ulcer [Recovered/Resolved]
  - Upper gastrointestinal haemorrhage [Recovered/Resolved]
  - Iatrogenic injury [Recovered/Resolved]
  - Haemodynamic instability [Recovered/Resolved]
  - Abdominal pain upper [Recovered/Resolved]
  - Adenocarcinoma gastric [Recovered/Resolved]
  - Dyspepsia [Recovered/Resolved]
  - Gastric ulcer haemorrhage [Unknown]
